FAERS Safety Report 8041399-7 (Version None)
Quarter: 2012Q1

REPORT INFORMATION
  Report Type: 
  Country: None (occurrence: None)
  Receive Date: 20120109
  Receipt Date: 20111226
  Transmission Date: 20120608
  Serious: Yes (Life-Threatening, Hospitalization, Other)
  Sender: FDA-Public Use
  Company Number: 2011MA017996

PATIENT
  Sex: Male
  Weight: 60.782 kg

DRUGS (44)
  1. SIMVASTATIN [Concomitant]
  2. ASPIRIN [Concomitant]
  3. HYDROCHLOROTHIAZIDE [Concomitant]
  4. FAMOTIDINE [Concomitant]
  5. LASIX [Concomitant]
  6. VERSED [Concomitant]
  7. ALBUTEROL [Concomitant]
  8. SOLU-MEDROL [Concomitant]
  9. BRONCHODILATORS [Concomitant]
  10. CARDIZEM [Concomitant]
  11. VIBRAMYCIN [Concomitant]
  12. AMIODARONE HCL [Concomitant]
  13. FERROUS SULFATE TAB [Concomitant]
  14. COUMADIN [Concomitant]
  15. DOXYCYCLINE [Concomitant]
  16. REGLAN [Concomitant]
  17. COMBIVENT [Concomitant]
  18. FENTANYL [Concomitant]
  19. AZITHROMYCIN [Concomitant]
  20. NEUROMUSCULAR BLOCKERS [Concomitant]
  21. NICOTINE [Concomitant]
  22. ATROVENT [Concomitant]
  23. LISINOPRIL [Concomitant]
  24. DIGOXIN [Suspect]
     Dosage: 0.5 MG;Q6H;IV
     Route: 042
     Dates: start: 20071203
  25. PROPOROL [Concomitant]
  26. PREDNISONE [Concomitant]
  27. COMBIVENT [Concomitant]
  28. LOPRESSOR [Concomitant]
  29. ACETAMINOPHEN [Concomitant]
  30. CEFTRIAXONE [Concomitant]
  31. PEPCID [Concomitant]
  32. ATIVAN [Concomitant]
  33. IV FLUIDS [Concomitant]
  34. DILTIAZEM HCL [Concomitant]
  35. ZOCOR [Concomitant]
  36. VARENICLINE [Concomitant]
  37. INSULIN [Concomitant]
  38. AMBIEN [Concomitant]
  39. STEROIDS [Concomitant]
  40. LOVENOX [Concomitant]
  41. CHANTIX [Concomitant]
  42. SODIUM CHLORIDE [Concomitant]
  43. METOPROLOL [Concomitant]
  44. POTASSIUM CHLORIDE [Concomitant]

REACTIONS (61)
  - BLOOD PRESSURE SYSTOLIC INCREASED [None]
  - HYPERTENSION [None]
  - PULMONARY FIBROSIS [None]
  - ELECTROCARDIOGRAM ST SEGMENT ABNORMAL [None]
  - CORONARY ARTERY OCCLUSION [None]
  - TOXICITY TO VARIOUS AGENTS [None]
  - ENDOCARDIAL DISEASE [None]
  - BLOOD POTASSIUM INCREASED [None]
  - PNEUMONIA [None]
  - EXPOSURE TO CHEMICAL POLLUTION [None]
  - BLOOD CALCIUM DECREASED [None]
  - LEUKOCYTOSIS [None]
  - CORONARY ARTERY DISEASE [None]
  - HYPERTENSIVE CARDIOMYOPATHY [None]
  - MYOCARDIAL INFARCTION [None]
  - BLOOD PRESSURE DIASTOLIC DECREASED [None]
  - DIZZINESS [None]
  - ATRIAL FIBRILLATION [None]
  - CARDIAC FAILURE CONGESTIVE [None]
  - LUNG DISORDER [None]
  - INSOMNIA [None]
  - RED BLOOD CELL HYPOCHROMIC MORPHOLOGY PRESENT [None]
  - THROMBOCYTOSIS [None]
  - HYPOKINESIA [None]
  - BLOOD ALBUMIN DECREASED [None]
  - MASS [None]
  - CARDIAC MURMUR [None]
  - PNEUMONITIS [None]
  - ATELECTASIS [None]
  - MITRAL VALVE INCOMPETENCE [None]
  - INTERNATIONAL NORMALISED RATIO INCREASED [None]
  - BLOOD IRON DECREASED [None]
  - CONDITION AGGRAVATED [None]
  - RESPIRATORY FAILURE [None]
  - CHEST X-RAY ABNORMAL [None]
  - MOBILITY DECREASED [None]
  - COR PULMONALE [None]
  - NIGHTMARE [None]
  - DIASTOLIC DYSFUNCTION [None]
  - HYPERTENSIVE HEART DISEASE [None]
  - SINUS BRADYCARDIA [None]
  - ANXIETY [None]
  - ASTHENIA [None]
  - TREATMENT NONCOMPLIANCE [None]
  - RENAL FAILURE ACUTE [None]
  - PULMONARY OEDEMA [None]
  - PLEURAL EFFUSION [None]
  - EMPHYSEMA [None]
  - SUPRAVENTRICULAR EXTRASYSTOLES [None]
  - INJURY [None]
  - CHRONIC OBSTRUCTIVE PULMONARY DISEASE [None]
  - CARDIAC DISORDER [None]
  - ELECTROCARDIOGRAM ST SEGMENT DEPRESSION [None]
  - ELECTROCARDIOGRAM T WAVE INVERSION [None]
  - BLOOD CHLORIDE DECREASED [None]
  - FATIGUE [None]
  - CAROTID BRUIT [None]
  - BALANCE DISORDER [None]
  - BLOOD GLUCOSE INCREASED [None]
  - FIBRIN D DIMER INCREASED [None]
  - NORMOCHROMIC NORMOCYTIC ANAEMIA [None]
